FAERS Safety Report 7575475-X (Version None)
Quarter: 2011Q2

REPORT INFORMATION
  Report Type: 
  Country: None (occurrence: None)
  Receive Date: 20110627
  Receipt Date: 20110617
  Transmission Date: 20111010
  Serious: Yes (Hospitalization)
  Sender: FDA-Public Use
  Company Number: FR-ABBOTT-11P-056-0733562-00

PATIENT
  Weight: 55 kg

DRUGS (8)
  1. BROMAZEPAM [Concomitant]
     Indication: DEPRESSION
     Route: 048
     Dates: start: 20040115
  2. FLUNITRAZEPAM [Concomitant]
     Indication: DEPRESSION
     Route: 048
     Dates: start: 20040115
  3. METFORMIN HCL [Concomitant]
     Indication: TYPE 2 DIABETES MELLITUS
     Route: 048
     Dates: start: 20080615
  4. CYAMEMAZINE [Concomitant]
     Indication: DEPRESSION
     Route: 048
     Dates: start: 20040115
  5. MIANSERINE [Concomitant]
     Indication: DEPRESSION
     Route: 048
     Dates: start: 20040115
  6. ROSUVASTATINE [Concomitant]
     Indication: HYPERLIPIDAEMIA
     Route: 048
     Dates: start: 20070115
  7. KALETRA [Suspect]
     Indication: HIV INFECTION
     Route: 048
     Dates: start: 20100907
  8. VENLAFAXINE [Concomitant]
     Indication: DEPRESSION
     Route: 048
     Dates: start: 20040115

REACTIONS (1)
  - PULMONARY EMBOLISM [None]
